FAERS Safety Report 25351879 (Version 1)
Quarter: 2025Q2

REPORT INFORMATION
  Report Type: Spontaneous
  Country: US (occurrence: None)
  Receive Date: 20250523
  Receipt Date: 20250523
  Transmission Date: 20250716
  Serious: Yes (Death, Hospitalization, Other)
  Sender: INCYTE
  Company Number: US-INCYTE CORPORATION-2025IN005595

PATIENT
  Age: 90 Year

DRUGS (1)
  1. JAKAFI [Suspect]
     Active Substance: RUXOLITINIB
     Indication: Cutaneous T-cell lymphoma
     Route: 065

REACTIONS (5)
  - Sepsis [Fatal]
  - Cutaneous T-cell lymphoma [Unknown]
  - Disease progression [Unknown]
  - Drug resistance [Unknown]
  - Off label use [Unknown]
